FAERS Safety Report 5120177-2 (Version None)
Quarter: 2006Q4

REPORT INFORMATION
  Report Type: 
  Country: None (occurrence: None)
  Receive Date: 20061002
  Receipt Date: 20061002
  Transmission Date: 20070319
  Serious: Yes (Hospitalization)
  Sender: FDA-Public Use
  Company Number: None

PATIENT
  Age: 60 Year
  Sex: Male
  Weight: 154 kg

DRUGS (2)
  1. BUMEX [Suspect]
     Indication: CARDIAC FAILURE CONGESTIVE
     Dosage: 2 MG BID PO
     Route: 048
  2. LISINOPRIL [Suspect]
     Indication: CARDIAC FAILURE CONGESTIVE
     Dosage: 40 MG QD PO
     Route: 048

REACTIONS (5)
  - DEHYDRATION [None]
  - HYPOTENSION [None]
  - OEDEMA [None]
  - POLYURIA [None]
  - RENAL FAILURE ACUTE [None]
